FAERS Safety Report 5419576-0 (Version None)
Quarter: 2007Q3

REPORT INFORMATION
  Report Type: 
  Country: None (occurrence: None)
  Receive Date: 20070820
  Receipt Date: 20070807
  Transmission Date: 20080115
  Serious: Yes (Hospitalization)
  Sender: FDA-Public Use
  Company Number: US-KINGPHARMUSA00001-K200701021

PATIENT

DRUGS (3)
  1. LEVOXYL [Suspect]
     Dosage: 100 MCG, UNK
  2. SIMVASTATIN [Suspect]
     Indication: LIPID METABOLISM DISORDER
     Dosage: 80 MG, UNK
  3. ANTIHYPERTENSIVES [Concomitant]

REACTIONS (2)
  - DRUG INTERACTION INHIBITION [None]
  - HYPOTHYROIDISM [None]
